FAERS Safety Report 8617158-0 (Version None)
Quarter: 2012Q3

REPORT INFORMATION
  Report Type: 
  Country: None (occurrence: None)
  Receive Date: 20120823
  Receipt Date: 20120819
  Transmission Date: 20120928
  Serious: No
  Sender: FDA-Public Use
  Company Number: US-PFIZER INC-2012197723

PATIENT
  Age: 40 Year
  Sex: Male
  Weight: 79.365 kg

DRUGS (1)
  1. CHANTIX [Suspect]
     Indication: SMOKING CESSATION THERAPY
     Dosage: 0.05 MG, TAKE IT AT 7:30AM AND 7:30PM
     Dates: start: 20120802

REACTIONS (10)
  - DRUG INEFFECTIVE [None]
  - FATIGUE [None]
  - DRY EYE [None]
  - FEELING ABNORMAL [None]
  - OCULAR HYPERAEMIA [None]
  - EYE DISORDER [None]
  - ABDOMINAL DISCOMFORT [None]
  - ERUCTATION [None]
  - FLATULENCE [None]
  - EYE PRURITUS [None]
